FAERS Safety Report 14034153 (Version 3)
Quarter: 2018Q1

REPORT INFORMATION
  Report Type: Report from Study
  Country: US (occurrence: US)
  Receive Date: 20171003
  Receipt Date: 20180124
  Transmission Date: 20180508
  Serious: No
  Sender: FDA-Public Use
  Company Number: PHEH2017US031683

PATIENT
  Sex: Female

DRUGS (3)
  1. ILARIS [Suspect]
     Active Substance: CANAKINUMAB
     Dosage: UNK, EVERY 4 WEEKS
     Route: 065
     Dates: start: 20170830
  2. ILARIS [Suspect]
     Active Substance: CANAKINUMAB
     Indication: PRODUCT USED FOR UNKNOWN INDICATION
     Dosage: UNK, EVERY 4 WEEKS
     Route: 065
  3. ILARIS [Suspect]
     Active Substance: CANAKINUMAB
     Dosage: UNK, EVERY 4 WEEKS
     Route: 065
     Dates: start: 20171219

REACTIONS (5)
  - Musculoskeletal disorder [Unknown]
  - Emotional poverty [Unknown]
  - Inappropriate schedule of drug administration [Unknown]
  - Arthralgia [Unknown]
  - Vomiting [Unknown]
